FAERS Safety Report 9952152 (Version 2)
Quarter: 2014Q1

REPORT INFORMATION
  Report Type: Spontaneous
  Country: US (occurrence: US)
  Receive Date: 20140304
  Receipt Date: 20140304
  Transmission Date: 20141002
  Serious: No
  Sender: FDA-Public Use
  Company Number: US-AMGEN-USASP2013080506

PATIENT
  Age: 47 Year
  Sex: Female
  Weight: 56.69 kg

DRUGS (14)
  1. ENBREL [Suspect]
     Indication: PRODUCT USED FOR UNKNOWN INDICATION
     Dosage: UNK
     Route: 065
  2. XELJANZ [Suspect]
     Indication: RHEUMATOID ARTHRITIS
     Dosage: 5 MG, BID
     Route: 048
  3. ADDERALL [Concomitant]
     Dosage: 20 MG, UNK
  4. CALCIUM [Concomitant]
     Dosage: 600 MG, UNK
  5. CHLOROQUINE PHOSPHATE [Concomitant]
     Dosage: 250 MG, UNK
  6. IRON [Concomitant]
     Dosage: UNK
  7. LASIX                              /00032601/ [Concomitant]
     Dosage: 40 MG, UNK
  8. NITROFURANTOIN [Concomitant]
     Dosage: 100 MG, UNK
  9. OXYCODONE HCL [Concomitant]
     Dosage: UNK
  10. PLAQUENIL                          /00072602/ [Concomitant]
     Dosage: 200 MG, UNK
  11. TRILEPTAL [Concomitant]
     Dosage: 150 MG, UNK
  12. VITAMIN B-12 [Concomitant]
     Dosage: VITAMIN B-12 1000 UNK, UNK
  13. VITAMIN D                          /00107901/ [Concomitant]
     Dosage: VITAMIN D 1000UNK, UNK
  14. XANAX [Concomitant]
     Dosage: 0.5 MG, UNK

REACTIONS (1)
  - Drug hypersensitivity [Unknown]
